FAERS Safety Report 4538982-X (Version None)
Quarter: 2004Q4

REPORT INFORMATION
  Report Type: 
  Country: None (occurrence: None)
  Receive Date: 20041222
  Receipt Date: 20041203
  Transmission Date: 20050328
  Serious: Yes (Death, Other)
  Sender: FDA-Public Use
  Company Number: USA041285251

PATIENT
  Age: 58 Year
  Sex: Female

DRUGS (1)
  1. ZYPREXA [Suspect]
     Dosage: 5 MG/1 DAY
     Dates: start: 20041119

REACTIONS (1)
  - HAEMORRHAGE [None]
